FAERS Safety Report 8225429-5 (Version None)
Quarter: 2012Q1

REPORT INFORMATION
  Report Type: 
  Country: None (occurrence: None)
  Receive Date: 20120321
  Receipt Date: 20120308
  Transmission Date: 20120608
  Serious: Yes (Other)
  Sender: FDA-Public Use
  Company Number: US-ELI_LILLY_AND_COMPANY-US201203003330

PATIENT
  Age: 70 Year
  Sex: Female

DRUGS (2)
  1. ALIMTA [Suspect]
     Indication: NON-SMALL CELL LUNG CANCER
     Dosage: 500 MG, UNKNOWN
     Route: 042
     Dates: start: 20110128
  2. CIPROFLOXACIN HYDROCHLORIDE [Concomitant]
     Indication: BRONCHITIS
     Dosage: 500 MG, UNKNOWN
     Dates: start: 20111117

REACTIONS (3)
  - PLEURAL EFFUSION [None]
  - OEDEMA [None]
  - PERICARDIAL EFFUSION [None]
